FAERS Safety Report 12471220 (Version 1)
Quarter: 2016Q2

REPORT INFORMATION
  Report Type: Spontaneous
  Country: GB (occurrence: GB)
  Receive Date: 20160616
  Receipt Date: 20160616
  Transmission Date: 20160815
  Serious: Yes (Disabling, Other)
  Sender: FDA-Public Use
  Company Number: GB-ABBVIE-16P-167-1652958-00

PATIENT
  Age: 35 Year
  Sex: Female
  Weight: 78 kg

DRUGS (7)
  1. PRO D3 [Concomitant]
     Indication: PRODUCT USED FOR UNKNOWN INDICATION
  2. CLARITHROMYCIN. [Suspect]
     Active Substance: CLARITHROMYCIN
     Indication: PHARYNGITIS
     Dosage: 1000 MG (500MG TABLETS X 2 TAKEN)
     Route: 048
     Dates: start: 20160510, end: 20160511
  3. PREDNISOLONE. [Concomitant]
     Active Substance: PREDNISOLONE
     Indication: PRODUCT USED FOR UNKNOWN INDICATION
  4. IBUPROFEN. [Concomitant]
     Active Substance: IBUPROFEN
     Indication: PRODUCT USED FOR UNKNOWN INDICATION
  5. AMOXICILLIN. [Concomitant]
     Active Substance: AMOXICILLIN
     Indication: PRODUCT USED FOR UNKNOWN INDICATION
  6. PHENOXIMETHYLPENICILLINUM [Concomitant]
     Active Substance: PENICILLIN V
     Indication: PRODUCT USED FOR UNKNOWN INDICATION
  7. PARACETAMOL [Concomitant]
     Active Substance: ACETAMINOPHEN
     Indication: PRODUCT USED FOR UNKNOWN INDICATION

REACTIONS (7)
  - Dysphonia [Not Recovered/Not Resolved]
  - Disorientation [Unknown]
  - Diarrhoea [Unknown]
  - Throat tightness [Not Recovered/Not Resolved]
  - Dizziness [Unknown]
  - Aphonia [Not Recovered/Not Resolved]
  - Pruritus generalised [Recovered/Resolved]

NARRATIVE: CASE EVENT DATE: 20160510
